FAERS Safety Report 4358689-1 (Version None)
Quarter: 2004Q2

REPORT INFORMATION
  Report Type: 
  Country: None (occurrence: None)
  Receive Date: 20040514
  Receipt Date: 20040514
  Transmission Date: 20050107
  Serious: No
  Sender: FDA-Public Use
  Company Number: None

PATIENT
  Age: 26 Year
  Sex: Female
  Weight: 61.2356 kg

DRUGS (2)
  1. EFFEXOR [Suspect]
     Indication: ANXIETY
     Dosage: 75 MG DAILY
     Dates: start: 20040204, end: 20040512
  2. EFFEXOR [Suspect]
     Indication: DEPRESSION
     Dosage: 75 MG DAILY
     Dates: start: 20040204, end: 20040512

REACTIONS (11)
  - AGGRESSION [None]
  - CONTUSION [None]
  - CRYING [None]
  - FATIGUE [None]
  - FEELING ABNORMAL [None]
  - HYPOAESTHESIA ORAL [None]
  - MENSTRUATION IRREGULAR [None]
  - NAUSEA [None]
  - SOMNOLENCE [None]
  - STOMACH DISCOMFORT [None]
  - VERTIGO [None]
